FAERS Safety Report 18869954 (Version 1)
Quarter: 2021Q1

REPORT INFORMATION
  Report Type: Spontaneous
  Country: US (occurrence: US)
  Receive Date: 20210209
  Receipt Date: 20210209
  Transmission Date: 20210420
  Serious: No
  Sender: FDA-Public Use
  Company Number: US-BAUSCH-BL-2021-001662

PATIENT
  Age: 78 Year
  Sex: Female

DRUGS (4)
  1. BESIVANCE [Suspect]
     Active Substance: BESIFLOXACIN
     Indication: OFF LABEL USE
  2. PROLENSA [Suspect]
     Active Substance: BROMFENAC SODIUM
     Indication: PRODUCT USE IN UNAPPROVED INDICATION
  3. BESIVANCE [Suspect]
     Active Substance: BESIFLOXACIN
     Indication: PREOPERATIVE CARE
     Route: 047
     Dates: start: 20210111
  4. PROLENSA [Suspect]
     Active Substance: BROMFENAC SODIUM
     Indication: PREOPERATIVE CARE
     Route: 047
     Dates: start: 20210111

REACTIONS (7)
  - Pruritus [Recovered/Resolved]
  - Diarrhoea [Unknown]
  - Intentional product use issue [Unknown]
  - Headache [Recovered/Resolved]
  - Nervousness [Unknown]
  - Product use in unapproved indication [Unknown]
  - Eye pain [Recovering/Resolving]

NARRATIVE: CASE EVENT DATE: 20210111
